FAERS Safety Report 4339932-1 (Version None)
Quarter: 2004Q2

REPORT INFORMATION
  Report Type: 
  Country: None (occurrence: None)
  Receive Date: 20040404
  Receipt Date: 20040404
  Transmission Date: 20050107
  Serious: Yes (Hospitalization)
  Sender: FDA-Public Use
  Company Number: None

PATIENT
  Sex: Female
  Weight: 66.6788 kg

DRUGS (3)
  1. IRESSA [Suspect]
     Indication: PANCREATIC CARCINOMA
     Dosage: 250 MG PO QD
     Route: 048
     Dates: start: 20040218, end: 20040324
  2. PACLITAXEL [Suspect]
     Indication: PANCREATIC CARCINOMA
     Dosage: 40 MG/M2 IV WEEKLY
     Route: 042
     Dates: start: 20040218, end: 20040324
  3. RADIATION THERAPY [Concomitant]

REACTIONS (7)
  - ANAEMIA [None]
  - ATRIAL FLUTTER [None]
  - HYPERTENSION [None]
  - HYPOMAGNESAEMIA [None]
  - HYPOPHOSPHATAEMIA [None]
  - INTERSTITIAL LUNG DISEASE [None]
  - PNEUMONIA [None]
